FAERS Safety Report 5943777-6 (Version None)
Quarter: 2008Q4

REPORT INFORMATION
  Report Type: 
  Country: None (occurrence: None)
  Receive Date: 20081106
  Receipt Date: 20080805
  Transmission Date: 20090506
  Serious: Yes (Other)
  Sender: FDA-Public Use
  Company Number: US-BAYER-200837193NA

PATIENT
  Age: 49 Year
  Sex: Female

DRUGS (5)
  1. MAGNEVIST [Suspect]
     Indication: NUCLEAR MAGNETIC RESONANCE IMAGING
  2. OMNISCAN [Suspect]
     Indication: NUCLEAR MAGNETIC RESONANCE IMAGING
  3. OPTIMARK [Suspect]
     Indication: NUCLEAR MAGNETIC RESONANCE IMAGING
  4. MULTIHANCE [Suspect]
     Indication: NUCLEAR MAGNETIC RESONANCE IMAGING
  5. PROHANCE [Suspect]
     Indication: NUCLEAR MAGNETIC RESONANCE IMAGING

REACTIONS (17)
  - ANHEDONIA [None]
  - ANXIETY [None]
  - EMOTIONAL DISTRESS [None]
  - GAIT DISTURBANCE [None]
  - GENERAL PHYSICAL HEALTH DETERIORATION [None]
  - MUSCLE INJURY [None]
  - MUSCULAR WEAKNESS [None]
  - NEPHROGENIC SYSTEMIC FIBROSIS [None]
  - OEDEMA PERIPHERAL [None]
  - PAIN [None]
  - PAIN IN EXTREMITY [None]
  - SCAR [None]
  - SKIN DISCOLOURATION [None]
  - SKIN DISORDER [None]
  - SKIN HYPERTROPHY [None]
  - SKIN INDURATION [None]
  - SKIN TIGHTNESS [None]
